FAERS Safety Report 10416097 (Version 1)
Quarter: 2014Q3

REPORT INFORMATION
  Report Type: Spontaneous
  Country: US (occurrence: US)
  Receive Date: 20140828
  Receipt Date: 20140828
  Transmission Date: 20150326
  Serious: No
  Sender: FDA-Public Use
  Company Number: US-MYLAN-2013S1014747

PATIENT
  Sex: Female

DRUGS (2)
  1. BUPROPION HYDROCHLORIDE EXTENDED RELEASE (XL) [Suspect]
     Active Substance: BUPROPION HYDROCHLORIDE
     Indication: OFF LABEL USE
  2. BUPROPION HYDROCHLORIDE EXTENDED RELEASE (XL) [Suspect]
     Active Substance: BUPROPION HYDROCHLORIDE
     Indication: SMOKING CESSATION THERAPY
     Dosage: 300 MG,QD
     Route: 048

REACTIONS (5)
  - Weight increased [Not Recovered/Not Resolved]
  - Product substitution issue [None]
  - Headache [Not Recovered/Not Resolved]
  - Product quality issue [None]
  - Off label use [None]

NARRATIVE: CASE EVENT DATE: 201301
